FAERS Safety Report 13461055 (Version 1)
Quarter: 2017Q2

REPORT INFORMATION
  Report Type: Report from Study
  Country: US (occurrence: US)
  Receive Date: 20170420
  Receipt Date: 20170420
  Transmission Date: 20170830
  Serious: Yes (Hospitalization, Other)
  Sender: FDA-Public Use
  Company Number: US-ARIAD PHARMACEUTICALS, INC-2017US008074

PATIENT
  Sex: Female

DRUGS (1)
  1. ICLUSIG [Suspect]
     Active Substance: PONATINIB
     Indication: CHRONIC MYELOID LEUKAEMIA
     Dosage: 30 MG, QD
     Route: 048
     Dates: start: 20170327

REACTIONS (24)
  - Skin lesion [Unknown]
  - Blood calcium decreased [Unknown]
  - Abdominal tenderness [Unknown]
  - Nausea [Unknown]
  - Constipation [Unknown]
  - Pain [Unknown]
  - Blast crisis in myelogenous leukaemia [Unknown]
  - Anaemia [Unknown]
  - Menorrhagia [Unknown]
  - Arthralgia [Unknown]
  - Leukopenia [Unknown]
  - Herpes simplex [Unknown]
  - Blood potassium decreased [Unknown]
  - Central venous catheterisation [Unknown]
  - Erythema [Unknown]
  - Oedema peripheral [Unknown]
  - Abdominal pain [Unknown]
  - Back pain [Unknown]
  - Tearfulness [Unknown]
  - Condition aggravated [Unknown]
  - Bone pain [Unknown]
  - Musculoskeletal pain [Unknown]
  - Blister [Unknown]
  - Thrombocytopenia [Unknown]
